FAERS Safety Report 7321609-1 (Version None)
Quarter: 2011Q1

REPORT INFORMATION
  Report Type: 
  Country: None (occurrence: None)
  Receive Date: 20110228
  Receipt Date: 20100723
  Transmission Date: 20110831
  Serious: No
  Sender: FDA-Public Use
  Company Number: A0873846A

PATIENT
  Sex: Female

DRUGS (1)
  1. VALTREX [Suspect]

REACTIONS (1)
  - DRUG EFFECT DECREASED [None]
